FAERS Safety Report 7301564-0 (Version None)
Quarter: 2011Q1

REPORT INFORMATION
  Report Type: 
  Country: None (occurrence: None)
  Receive Date: 20110218
  Receipt Date: 20110209
  Transmission Date: 20110831
  Serious: Yes (Hospitalization)
  Sender: FDA-Public Use
  Company Number: FR-PFIZER INC-2011010941

PATIENT
  Age: 55 Year
  Sex: Female

DRUGS (4)
  1. AUGMENTIN '125' [Suspect]
     Indication: COUGH
     Dosage: 1 G, 3X/DAY
     Route: 048
     Dates: start: 20101223, end: 20101230
  2. ADVIL [Suspect]
     Indication: PYREXIA
     Dosage: UNK
     Dates: start: 20101223, end: 20101230
  3. ATENOLOL [Concomitant]
     Indication: HYPERTENSION
     Dosage: 100 MG DAILY
  4. PARACETAMOL [Concomitant]
     Indication: PYREXIA
     Dosage: UNK
     Route: 048
     Dates: start: 20101223, end: 20101230

REACTIONS (4)
  - PNEUMONIA [None]
  - INFECTION [None]
  - DIARRHOEA [None]
  - ACUTE RESPIRATORY DISTRESS SYNDROME [None]
